FAERS Safety Report 26120078 (Version 1)
Quarter: 2025Q4

REPORT INFORMATION
  Report Type: Report from Study
  Country: CA (occurrence: CA)
  Receive Date: 20251204
  Receipt Date: 20251204
  Transmission Date: 20260119
  Serious: Yes (Other)
  Sender: ABBVIE
  Company Number: CA-ABBVIE-6571504

PATIENT
  Sex: Female

DRUGS (1)
  1. HUMIRA [Suspect]
     Active Substance: ADALIMUMAB
     Indication: Crohn^s disease
     Route: 058

REACTIONS (12)
  - Acute kidney injury [Unknown]
  - Diarrhoea [Unknown]
  - Faecal calprotectin increased [Unknown]
  - Defaecation urgency [Unknown]
  - Haematuria [Unknown]
  - Dehydration [Unknown]
  - Adverse drug reaction [Unknown]
  - Therapeutic product effect decreased [Unknown]
  - Iron deficiency anaemia [Unknown]
  - Benign neoplasm of thyroid gland [Unknown]
  - Haemorrhoids [Unknown]
  - Alanine aminotransferase abnormal [Unknown]
